FAERS Safety Report 5411159-1 (Version None)
Quarter: 2007Q3

REPORT INFORMATION
  Report Type: 
  Country: None (occurrence: None)
  Receive Date: 20070808
  Receipt Date: 20070711
  Transmission Date: 20080115
  Serious: Yes (Other)
  Sender: FDA-Public Use
  Company Number: 200602IM000148

PATIENT
  Age: 56 Year
  Sex: Male

DRUGS (1)
  1. INTERFERON GAMMA-1B [Suspect]
     Indication: METASTATIC NEOPLASM
     Dosage: 2, 5X PER WEEK, SUBCUTANEOUS
     Route: 058

REACTIONS (8)
  - ACUTE GRAFT VERSUS HOST DISEASE IN INTESTINE [None]
  - CANCER IN REMISSION [None]
  - CLEAR CELL CARCINOMA OF THE KIDNEY [None]
  - CORD BLOOD TRANSPLANT THERAPY [None]
  - DRUG INEFFECTIVE FOR UNAPPROVED INDICATION [None]
  - HYPERKALAEMIA [None]
  - MALIGNANT NEOPLASM PROGRESSION [None]
  - TRANSPLANT REJECTION [None]
